FAERS Safety Report 26068317 (Version 1)
Quarter: 2025Q4

REPORT INFORMATION
  Report Type: Spontaneous
  Country: US (occurrence: US)
  Receive Date: 20251120
  Receipt Date: 20251120
  Transmission Date: 20260118
  Serious: No
  Sender: ABBVIE
  Company Number: US-ABBVIE-6553758

PATIENT

DRUGS (1)
  1. REFRESH TEARS PF [Suspect]
     Active Substance: CARBOXYMETHYLCELLULOSE SODIUM\GLYCERIN
     Indication: Product used for unknown indication
     Dosage: FORM STRENGTH: 10 MILLILITERS?UNKNOWN
     Route: 047

REACTIONS (2)
  - Arthritis [Unknown]
  - Product container issue [Unknown]

NARRATIVE: CASE EVENT DATE: 20251105
